FAERS Safety Report 4965796-9 (Version None)
Quarter: 2006Q2

REPORT INFORMATION
  Report Type: 
  Country: None (occurrence: None)
  Receive Date: 20060406
  Receipt Date: 20060406
  Transmission Date: 20061013
  Serious: No
  Sender: FDA-Public Use
  Company Number: None

PATIENT
  Age: 46 Year
  Sex: Female

DRUGS (1)
  1. APLISOL [Suspect]
     Dates: start: 20060313

REACTIONS (6)
  - CONDITION AGGRAVATED [None]
  - FATIGUE [None]
  - LYMPHADENOPATHY [None]
  - MALAISE [None]
  - PAIN [None]
  - PYREXIA [None]
